FAERS Safety Report 6723484-2 (Version None)
Quarter: 2010Q2

REPORT INFORMATION
  Report Type: 
  Country: None (occurrence: None)
  Receive Date: 20100513
  Receipt Date: 20100305
  Transmission Date: 20101027
  Serious: Yes (Hospitalization, Disabling, Other)
  Sender: FDA-Public Use
  Company Number: US-ROCHE-385239

PATIENT
  Sex: Female

DRUGS (2)
  1. ACCUTANE [Suspect]
     Indication: ACNE
     Route: 048
     Dates: start: 19980601, end: 19981001
  2. BIRTH CONTROL PILLS NOS [Concomitant]
     Dosage: FREQENCY REPORTED AS EVERY DAY
     Route: 048

REACTIONS (22)
  - ACNE [None]
  - ARTHRALGIA [None]
  - COLITIS [None]
  - COLITIS ULCERATIVE [None]
  - CROHN'S DISEASE [None]
  - DEPRESSION [None]
  - ENTERITIS [None]
  - ENTEROCOLITIS INFECTIOUS [None]
  - GASTROINTESTINAL DISORDER [None]
  - HEADACHE [None]
  - HYDRONEPHROSIS [None]
  - INFECTION [None]
  - INFLAMMATORY BOWEL DISEASE [None]
  - INTESTINAL HAEMORRHAGE [None]
  - IRON DEFICIENCY ANAEMIA [None]
  - MULTI-ORGAN DISORDER [None]
  - PYELONEPHRITIS [None]
  - RECTAL ABSCESS [None]
  - RECTAL HAEMORRHAGE [None]
  - SUICIDAL IDEATION [None]
  - SYNCOPE [None]
  - VISUAL IMPAIRMENT [None]
